FAERS Safety Report 20840331 (Version 1)
Quarter: 2022Q2

REPORT INFORMATION
  Report Type: Spontaneous
  Country: CH (occurrence: CH)
  Receive Date: 20220517
  Receipt Date: 20220517
  Transmission Date: 20220721
  Serious: Yes (Hospitalization, Other)
  Sender: FDA-Public Use
  Company Number: CH-ALLERGAN-2215921US

PATIENT
  Sex: Female

DRUGS (17)
  1. LINACLOTIDE [Suspect]
     Active Substance: LINACLOTIDE
     Indication: Product used for unknown indication
     Dosage: 580 ?G, BID
     Route: 048
  2. FENTANYL TRANSDERMAL SYSTEM [Suspect]
     Active Substance: FENTANYL
     Indication: Product used for unknown indication
     Dosage: 200 ?G, Q1HR
     Route: 062
  3. NAPROXEN [Suspect]
     Active Substance: NAPROXEN
     Indication: Product used for unknown indication
     Dosage: 550 MG
     Route: 048
  4. NAPROXEN [Suspect]
     Active Substance: NAPROXEN
     Dosage: 225 MG
     Route: 048
  5. DIENOGEST [Suspect]
     Active Substance: DIENOGEST
     Indication: Product used for unknown indication
     Dosage: 2 MG, QD
     Route: 048
  6. KLEAN-PREP [Suspect]
     Active Substance: ELECTROLYTES NOS\POLYETHYLENE GLYCOL 3350
     Indication: Product used for unknown indication
     Dosage: 1 DF, QD
     Route: 048
  7. PRUCALOPRIDE SUCCINATE [Suspect]
     Active Substance: PRUCALOPRIDE SUCCINATE
     Indication: Product used for unknown indication
     Dosage: 1 MG, QD
     Route: 048
  8. RELISTOR [Suspect]
     Active Substance: METHYLNALTREXONE BROMIDE
     Indication: Product used for unknown indication
     Dosage: 12 MG, QD
     Route: 058
  9. ELECTROLYTES NOS\POLYETHYLENE GLYCOL 4000 [Suspect]
     Active Substance: ELECTROLYTES NOS\POLYETHYLENE GLYCOL 4000
     Indication: Product used for unknown indication
     Dosage: 1 DF, PRN, ACTUAL: 1 SACHET MAX 1X/DAY, AS NECESSARY
  10. FREKA-CLYSS [Concomitant]
     Dosage: UNK UNK, PRN
  11. KETAMINE [Concomitant]
     Active Substance: KETAMINE
     Dosage: 1 DF
     Route: 048
  12. ACETAMINOPHEN [Concomitant]
     Active Substance: ACETAMINOPHEN
     Dosage: 1 DF, PRN, ACTUAL: AS NECESSARY
  13. VALPROATE [Concomitant]
     Active Substance: VALPROIC ACID
     Dosage: 1 DF
  14. TRAZODONE [Concomitant]
     Active Substance: TRAZODONE HYDROCHLORIDE
     Dosage: 1 DF
  15. ZOPICLONE [Concomitant]
     Active Substance: ZOPICLONE
     Dosage: 1 DF
  16. MELATONIN [Concomitant]
     Active Substance: MELATONIN
     Dosage: 1 DF
  17. CHOLECALCIFEROL [Concomitant]
     Active Substance: CHOLECALCIFEROL
     Dosage: 1 DF

REACTIONS (3)
  - Volvulus [Recovered/Resolved]
  - Constipation [Not Recovered/Not Resolved]
  - Abdominal pain [Not Recovered/Not Resolved]

NARRATIVE: CASE EVENT DATE: 20200101
